FAERS Safety Report 4880337-2 (Version None)
Quarter: 2006Q1

REPORT INFORMATION
  Report Type: 
  Country: None (occurrence: None)
  Receive Date: 20060111
  Receipt Date: 20060111
  Transmission Date: 20060701
  Serious: Yes (Hospitalization)
  Sender: FDA-Public Use
  Company Number: None

PATIENT
  Age: 2 Year
  Sex: Male

DRUGS (4)
  1. ETOPOSIDE [Suspect]
  2. THALIDOMIDE [Concomitant]
  3. CELEBREX [Concomitant]
  4. FENOFIBRATE [Concomitant]

REACTIONS (2)
  - CELLULITIS [None]
  - NEUTROPENIA [None]
